FAERS Safety Report 14972831 (Version 1)
Quarter: 2018Q2

REPORT INFORMATION
  Report Type: Spontaneous
  Country: US (occurrence: US)
  Receive Date: 20180514
  Receipt Date: 20180514
  Transmission Date: 20180711
  Serious: Yes (Hospitalization)
  Sender: FDA-Public Use
  Company Number: None

PATIENT
  Age: 78 Year
  Sex: Male

DRUGS (20)
  1. SIMVASTATIN. [Concomitant]
     Active Substance: SIMVASTATIN
  2. FUROSEMIDE. [Concomitant]
     Active Substance: FUROSEMIDE
  3. PROMOD PROTEIN SUPPLEMENT [Concomitant]
  4. SELSUN BLUE [Concomitant]
     Active Substance: SELENIUM SULFIDE
  5. AMPYRA [Suspect]
     Active Substance: DALFAMPRIDINE
     Indication: MULTIPLE SCLEROSIS
     Route: 048
     Dates: start: 201607
  6. CALCIUM CARBONATE-VIT D3 [Concomitant]
  7. FERROUS SULFATE. [Concomitant]
     Active Substance: FERROUS SULFATE
  8. FOSAMAX [Concomitant]
     Active Substance: ALENDRONATE SODIUM
  9. VITAMIN B12 [Concomitant]
     Active Substance: CYANOCOBALAMIN
  10. BIOTIN [Concomitant]
     Active Substance: BIOTIN
  11. CLOTRIMAZOLE TOP CREAM [Concomitant]
  12. ATENOLOL. [Concomitant]
     Active Substance: ATENOLOL
  13. LISINOPRIL. [Concomitant]
     Active Substance: LISINOPRIL
  14. PERCOCET [Concomitant]
     Active Substance: ACETAMINOPHEN\OXYCODONE HYDROCHLORIDE
  15. MIRALAX [Concomitant]
     Active Substance: POLYETHYLENE GLYCOL 3350
  16. ASPIRIN. [Concomitant]
     Active Substance: ASPIRIN
  17. VITAMIN D2 [Concomitant]
     Active Substance: ERGOCALCIFEROL
  18. VITAMIN C [Concomitant]
     Active Substance: ASCORBIC ACID
  19. MVI [Concomitant]
     Active Substance: VITAMINS
  20. ZYRTEC [Concomitant]
     Active Substance: CETIRIZINE HYDROCHLORIDE

REACTIONS (3)
  - Fall [None]
  - Hip fracture [None]
  - Urinary tract infection [None]

NARRATIVE: CASE EVENT DATE: 20180328
